FAERS Safety Report 7628890-X (Version None)
Quarter: 2011Q3

REPORT INFORMATION
  Report Type: 
  Country: None (occurrence: None)
  Receive Date: 20110722
  Receipt Date: 20110707
  Transmission Date: 20111222
  Serious: Yes (Hospitalization)
  Sender: FDA-Public Use
  Company Number: CA-BAYER-2011-058891

PATIENT
  Age: 77 Year
  Sex: Female
  Weight: 71 kg

DRUGS (8)
  1. ACETYLSALICYLIC ACID SRT [Suspect]
     Route: 048
  2. NORVASC [Concomitant]
     Route: 048
  3. XARELTO [Interacting]
     Dosage: 10 MG, QD
     Route: 048
  4. VENTOLIN HFA [Concomitant]
     Route: 055
  5. THEOPHYLLINE [Concomitant]
     Route: 048
  6. MICARDIS [Concomitant]
     Route: 048
  7. OXYBUTYNIN [Concomitant]
     Route: 048
  8. PULMICORT [Concomitant]
     Route: 055

REACTIONS (1)
  - HAEMOPTYSIS [None]
